FAERS Safety Report 9320324 (Version 1)
Quarter: 2013Q2

REPORT INFORMATION
  Report Type: Spontaneous
  Country: GB (occurrence: GB)
  Receive Date: 20130530
  Receipt Date: 20130530
  Transmission Date: 20140414
  Serious: Yes (Other)
  Sender: FDA-Public Use
  Company Number: GB-B.I. PHARMACEUTICALS,INC./RIDGEFIELD-2013-UK-01143UK

PATIENT
  Age: 84 Year
  Sex: Male
  Weight: 77 kg

DRUGS (4)
  1. PRADAXA [Suspect]
     Indication: ATRIAL FIBRILLATION
     Dosage: 220 MG
     Route: 048
     Dates: start: 20130212, end: 20130214
  2. PRADAXA [Suspect]
     Dosage: 220 MG
     Route: 048
     Dates: start: 201303
  3. ADIZEM-XL [Concomitant]
     Indication: HYPERTENSION
     Dosage: 120 MG
     Dates: start: 20120830
  4. PERINDOPRIL [Concomitant]
     Indication: HYPERTENSION
     Dosage: 2 MG
     Dates: start: 20120927

REACTIONS (2)
  - Ataxia [Recovered/Resolved]
  - Dizziness [Recovered/Resolved]
